FAERS Safety Report 9376473 (Version 1)
Quarter: 2013Q3

REPORT INFORMATION
  Report Type: Spontaneous
  Country: FR (occurrence: FR)
  Receive Date: 20130701
  Receipt Date: 20130701
  Transmission Date: 20140515
  Serious: Yes (Other)
  Sender: FDA-Public Use
  Company Number: FR-JNJFOC-20130612516

PATIENT
  Age: 59 Year
  Sex: Female

DRUGS (6)
  1. DOXORUBICIN [Suspect]
     Indication: OVARIAN CANCER RECURRENT
     Route: 042
  2. PACLITAXEL [Suspect]
     Indication: OVARIAN CANCER RECURRENT
     Route: 065
  3. CARBOPLATIN [Suspect]
     Indication: OVARIAN CANCER RECURRENT
     Route: 065
  4. BEVACIZUMAB [Suspect]
     Indication: OVARIAN CANCER RECURRENT
     Route: 065
  5. CYCLOPHOSPHAMIDE [Suspect]
     Indication: OVARIAN CANCER RECURRENT
     Route: 065
  6. ACE INHIBITOR [Concomitant]
     Indication: HYPERTENSION
     Route: 065

REACTIONS (2)
  - Cardiac failure acute [Unknown]
  - Renal failure acute [Recovering/Resolving]
